FAERS Safety Report 8603633-1 (Version None)
Quarter: 2012Q3

REPORT INFORMATION
  Report Type: 
  Country: None (occurrence: None)
  Receive Date: 20120817
  Receipt Date: 20120810
  Transmission Date: 20120928
  Serious: Yes (Hospitalization)
  Sender: FDA-Public Use
  Company Number: ES-B.I. PHARMACEUTICALS,INC./RIDGEFIELD-2012-ES-00319ES

PATIENT
  Age: 37 Year
  Sex: Female

DRUGS (2)
  1. REPAGLINIDE [Suspect]
     Indication: TYPE 2 DIABETES MELLITUS
     Dates: start: 20120528, end: 20120615
  2. TRAJENTA [Suspect]
     Indication: TYPE 2 DIABETES MELLITUS
     Route: 048
     Dates: start: 20120604, end: 20120606

REACTIONS (3)
  - DRUG-INDUCED LIVER INJURY [None]
  - JAUNDICE [None]
  - PRURITUS GENERALISED [None]
